FAERS Safety Report 23690367 (Version 1)
Quarter: 2024Q2

REPORT INFORMATION
  Report Type: Report from Study
  Country: CZ (occurrence: CZ)
  Receive Date: 20240401
  Receipt Date: 20240401
  Transmission Date: 20240716
  Serious: Yes (Hospitalization)
  Sender: FDA-Public Use
  Company Number: CZ-ABBVIE-5700137

PATIENT
  Age: 58 Year
  Sex: Female

DRUGS (1)
  1. RINVOQ [Suspect]
     Active Substance: UPADACITINIB
     Indication: Ankylosing spondylitis
     Route: 048
     Dates: end: 20240218

REACTIONS (7)
  - Dysarthria [Recovered/Resolved]
  - Speech disorder [Recovered/Resolved]
  - Cerebral vasoconstriction [Recovered/Resolved]
  - Photophobia [Recovered/Resolved]
  - Unevaluable event [Recovered/Resolved]
  - Vertigo [Recovered/Resolved]
  - Migraine [Recovered/Resolved]

NARRATIVE: CASE EVENT DATE: 20231031
